FAERS Safety Report 6772238-X (Version None)
Quarter: 2010Q2

REPORT INFORMATION
  Report Type: 
  Country: None (occurrence: None)
  Receive Date: 20100616
  Receipt Date: 20100324
  Transmission Date: 20101027
  Serious: No
  Sender: FDA-Public Use
  Company Number: US-ASTRAZENECA-2010SE13039

PATIENT
  Sex: Male

DRUGS (4)
  1. PULMICORT [Suspect]
     Route: 055
  2. SYMBICORT [Suspect]
     Route: 055
  3. XOPENEX [Concomitant]
  4. PERFOROMIST [Concomitant]

REACTIONS (1)
  - TREMOR [None]
